FAERS Safety Report 10542751 (Version 1)
Quarter: 2014Q4

REPORT INFORMATION
  Report Type: Report from Study
  Country: HU (occurrence: HU)
  Receive Date: 20141027
  Receipt Date: 20141027
  Transmission Date: 20150529
  Serious: Yes (Death)
  Sender: FDA-Public Use
  Company Number: HU-ROCHE-1479180

PATIENT

DRUGS (1)
  1. ALTEPLASE [Suspect]
     Active Substance: ALTEPLASE
     Indication: PULMONARY EMBOLISM
     Dosage: ROUTE : OTHER: CATHETER DIRECTED
     Route: 050

REACTIONS (2)
  - Paradoxical embolism [Fatal]
  - Intestinal ischaemia [Fatal]
